FAERS Safety Report 8086628-9 (Version None)
Quarter: 2012Q1

REPORT INFORMATION
  Report Type: 
  Country: None (occurrence: None)
  Receive Date: 20120128
  Receipt Date: 20110513
  Transmission Date: 20120608
  Serious: No
  Sender: FDA-Public Use
  Company Number: US-ABBOTT-11P-163-0726311-00

PATIENT
  Sex: Female
  Weight: 73.548 kg

DRUGS (13)
  1. TRILIPIX [Concomitant]
     Indication: BLOOD CHOLESTEROL INCREASED
  2. FOLIC ACID [Concomitant]
     Indication: VITAMIN SUPPLEMENTATION
  3. AMITRIPTYLINE HCL [Concomitant]
     Indication: INSOMNIA
  4. MEGA B VITAMIN [Concomitant]
     Indication: VITAMIN SUPPLEMENTATION
  5. CRESTOR [Concomitant]
     Indication: BLOOD CHOLESTEROL INCREASED
  6. SENIOR MULTIVITAMIN [Concomitant]
     Indication: VITAMIN SUPPLEMENTATION
  7. ALPRAZOLAM [Concomitant]
     Indication: INSOMNIA
  8. HUMIRA [Suspect]
     Indication: RHEUMATOID ARTHRITIS
     Dates: start: 20110401
  9. BENICAR [Concomitant]
     Indication: HYPERTENSION
  10. ASPIRIN [Concomitant]
     Indication: CARDIAC DISORDER
  11. NEXIUM [Concomitant]
     Indication: GASTROOESOPHAGEAL REFLUX DISEASE
  12. ESTRACE [Concomitant]
     Indication: HORMONE REPLACEMENT THERAPY
  13. VITAMIN D [Concomitant]
     Indication: VITAMIN SUPPLEMENTATION

REACTIONS (3)
  - RASH [None]
  - URTICARIA [None]
  - LOCALISED INFECTION [None]
